FAERS Safety Report 19498240 (Version 1)
Quarter: 2021Q3

REPORT INFORMATION
  Report Type: Spontaneous
  Country: US (occurrence: US)
  Receive Date: 20210706
  Receipt Date: 20210706
  Transmission Date: 20211014
  Serious: Yes (Hospitalization, Other)
  Sender: FDA-Public Use
  Company Number: US-PFIZER INC-2021758125

PATIENT
  Age: 77 Year
  Sex: Female

DRUGS (1)
  1. CIPROFLOXACIN. [Suspect]
     Active Substance: CIPROFLOXACIN
     Indication: URINARY TRACT INFECTION
     Dosage: 250 MG, 2X/DAY (1 IN 12 HR)
     Dates: start: 20200414, end: 202004

REACTIONS (8)
  - Pyrexia [Unknown]
  - Illness [Unknown]
  - Cataract [Recovered/Resolved]
  - Vomiting [Unknown]
  - Pain [Recovered/Resolved]
  - Influenza like illness [Unknown]
  - Nausea [Unknown]
  - Depression [Unknown]

NARRATIVE: CASE EVENT DATE: 20200414
